FAERS Safety Report 19190387 (Version 2)
Quarter: 2021Q2

REPORT INFORMATION
  Report Type: Spontaneous
  Country: BR (occurrence: BR)
  Receive Date: 20210428
  Receipt Date: 20210519
  Transmission Date: 20210717
  Serious: Yes (Other)
  Sender: FDA-Public Use
  Company Number: BR-ANIPHARMA-2021-BR-000066

PATIENT
  Age: 80 Year
  Sex: Female

DRUGS (5)
  1. CLOPIDOGREL [Concomitant]
     Active Substance: CLOPIDOGREL BISULFATE
     Dosage: UNKNOWN DOSE AND FREQUENCY
     Route: 065
  2. ATACAND [Suspect]
     Active Substance: CANDESARTAN CILEXETIL
     Indication: BLOOD PRESSURE MEASUREMENT
     Dosage: 8 MG HALF TABLET DAILY/8 MG ONE TABLET DAILY /8 MG ONE AND HALF TABLET DAILY/8 MG TWO TABLETS DAILY
     Route: 048
     Dates: end: 20210329
  3. SOMALGIN [Concomitant]
     Active Substance: ASPIRIN\DIHYDROXYALUMINUM AMINOACETATE ANHYDROUS\MAGNESIUM CARBONATE
     Route: 065
  4. SYNTHROID [Concomitant]
     Active Substance: LEVOTHYROXINE SODIUM
     Dosage: 100 MG UNK
     Route: 065
  5. CONCORDIN [Concomitant]
     Dosage: 1.25 MG UNK
     Route: 065

REACTIONS (6)
  - Heart rate increased [Recovered/Resolved]
  - Blood pressure increased [Recovered/Resolved]
  - Blood pressure abnormal [Unknown]
  - Drug ineffective [Recovered/Resolved]
  - Malaise [Unknown]
  - Ischaemia [Unknown]

NARRATIVE: CASE EVENT DATE: 20201222
